FAERS Safety Report 20605948 (Version 1)
Quarter: 2022Q1

REPORT INFORMATION
  Report Type: Report from Study
  Country: CA (occurrence: CA)
  Receive Date: 20220317
  Receipt Date: 20220317
  Transmission Date: 20220423
  Serious: Yes (Other)
  Sender: FDA-Public Use
  Company Number: CA-JNJFOC-20210651977

PATIENT
  Age: 26 Year
  Sex: Female
  Weight: 45 kg

DRUGS (2)
  1. REMICADE [Suspect]
     Active Substance: INFLIXIMAB
     Indication: Crohn^s disease
     Dosage: NEXT INFUSION WAS TAKEN ON 18-JUL-2019
     Route: 042
     Dates: start: 20190704
  2. REMICADE [Suspect]
     Active Substance: INFLIXIMAB
     Route: 042
     Dates: start: 20190704

REACTIONS (3)
  - Exposure during pregnancy [Recovered/Resolved]
  - Wound [Recovering/Resolving]
  - Fungal infection [Recovering/Resolving]

NARRATIVE: CASE EVENT DATE: 20210401
